FAERS Safety Report 11271293 (Version 2)
Quarter: 2015Q3

REPORT INFORMATION
  Report Type: Report from Study
  Country: US (occurrence: US)
  Receive Date: 20150714
  Receipt Date: 20150728
  Transmission Date: 20151125
  Serious: Yes (Other)
  Sender: FDA-Public Use
  Company Number: PHEH2015US013348

PATIENT
  Age: 58 Year
  Sex: Male

DRUGS (2)
  1. FARYDAK [Suspect]
     Active Substance: PANOBINOSTAT
     Indication: PLASMA CELL MYELOMA
     Dosage: 20 MG, QOD, TAKE 1 CAPSULE ON MONDAY, WEDNESDAY AND FRIDAY OF THE FIRST TWO WEEKS OF A 21 DAY CYCLE
     Route: 048
     Dates: start: 20150613
  2. FARYDAK [Suspect]
     Active Substance: PANOBINOSTAT
     Dosage: 20 MG, UNK
     Route: 048
     Dates: start: 20150706, end: 20150711

REACTIONS (3)
  - Heart rate decreased [Unknown]
  - Bundle branch block [Recovering/Resolving]
  - Loss of consciousness [Unknown]

NARRATIVE: CASE EVENT DATE: 20150706
